FAERS Safety Report 4524051-1 (Version None)
Quarter: 2004Q4

REPORT INFORMATION
  Report Type: 
  Country: None (occurrence: None)
  Receive Date: 20041119
  Receipt Date: 20041008
  Transmission Date: 20050328
  Serious: No
  Sender: FDA-Public Use
  Company Number: PHEH2004US09029

PATIENT
  Age: 54 Year
  Sex: Female
  Weight: 53.5 kg

DRUGS (2)
  1. ZELNORM [Suspect]
     Indication: IRRITABLE BOWEL SYNDROME
     Dosage: 6MG, BID
     Dates: start: 20040401
  2. IBUPROFEN [Suspect]
     Indication: BACK PAIN
     Dosage: 400 MG, QID

REACTIONS (4)
  - ANOREXIA [None]
  - BACK PAIN [None]
  - CONSTIPATION [None]
  - MUSCLE SPASMS [None]
